FAERS Safety Report 15121003 (Version 1)
Quarter: 2018Q3

REPORT INFORMATION
  Report Type: Spontaneous
  Country: PT (occurrence: PT)
  Receive Date: 20180709
  Receipt Date: 20180709
  Transmission Date: 20181010
  Serious: Yes (Other)
  Sender: FDA-Public Use
  Company Number: PT-WEST-WARD PHARMACEUTICALS CORP.-PT-H14001-18-05517

PATIENT
  Age: 67 Year
  Sex: Male

DRUGS (17)
  1. TURMERIC [Interacting]
     Active Substance: HERBALS\TURMERIC
     Indication: PRODUCT USED FOR UNKNOWN INDICATION
     Route: 048
  2. VITAMIN C [Concomitant]
     Active Substance: ASCORBIC ACID
     Indication: SUPPLEMENTATION THERAPY
     Dosage: FORM?PILLS, DURATION?14 DAYS UNTIL ONE DAY BEFORE THE SECOND DOSE OF CHEMOTHERAPY (END FEBRUARY). ()
     Route: 065
  3. ALFUZOSIN [Concomitant]
     Active Substance: ALFUZOSIN
     Indication: PRODUCT USED FOR UNKNOWN INDICATION
     Dosage: ()
     Route: 065
  4. COLOSTRUM [Concomitant]
     Indication: PRODUCT USED FOR UNKNOWN INDICATION
     Route: 065
  5. SPIRIVA [Suspect]
     Active Substance: TIOTROPIUM BROMIDE MONOHYDRATE
     Indication: PRODUCT USED FOR UNKNOWN INDICATION
     Dosage: ()
     Route: 065
  6. VITAMIN A [Concomitant]
     Active Substance: VITAMIN A
     Indication: SUPPLEMENTATION THERAPY
     Dosage: FORM?PILLS, DURATION?14 DAYS UNTIL ONE DAY BEFORE THE SECOND DOSE OF CHEMOTHERAPY (END FEBRUARY). ()
     Route: 065
  7. PACLITAXEL. [Interacting]
     Active Substance: PACLITAXEL
     Indication: PRODUCT USED FOR UNKNOWN INDICATION
     Dosage: DOSE: 165 MG/M2 ()
     Route: 065
  8. SELENIUM [Concomitant]
     Active Substance: SELENIUM
     Indication: SUPPLEMENTATION THERAPY
     Dosage: FORM?PILLS?DURATION?14 DAYS UNTIL ONE DAY BEFORE THE SECOND DOSE OF CHEMOTHERAPY (END FEBRUARY). ()
     Route: 065
  9. ATORVASTATIN [Concomitant]
     Active Substance: ATORVASTATIN
     Indication: PRODUCT USED FOR UNKNOWN INDICATION
     Dosage: ()
     Route: 065
  10. CHLORELLA VULGARIS [Interacting]
     Active Substance: CHLORELLA VULGARIS
     Indication: PRODUCT USED FOR UNKNOWN INDICATION
     Dosage: PILLS
     Route: 065
  11. VITAMIN E [Concomitant]
     Active Substance: .ALPHA.-TOCOPHEROL
     Indication: SUPPLEMENTATION THERAPY
     Dosage: FORM?PILLS, DURATION?14 DAYS UNTIL ONE DAY BEFORE THE SECOND DOSE OF CHEMOTHERAPY (END FEBRUARY). ()
     Route: 065
  12. CHLORELLA VULGARIS [Interacting]
     Active Substance: CHLORELLA VULGARIS
     Dosage: FORM?PILLS. RESTARTED IN MIDDLE OF MARCH TWO WEEKS LATER ()
     Route: 065
  13. SYMBICORT [Concomitant]
     Active Substance: BUDESONIDE\FORMOTEROL FUMARATE DIHYDRATE
     Indication: PRODUCT USED FOR UNKNOWN INDICATION
     Dosage: ()
     Route: 065
  14. ZINC SULFATE [Concomitant]
     Active Substance: ZINC SULFATE\ZINC SULFATE ANHYDROUS
     Indication: SUPPLEMENTATION THERAPY
     Dosage: FORM?PILLS, DURATION?14 DAYS UNTIL ONE DAY BEFORE THE SECOND DOSE OF CHEMOTHERAPY (END FEBRUARY). ()
     Route: 065
  15. CARBOPLATIN. [Suspect]
     Active Substance: CARBOPLATIN
     Indication: PRODUCT USED FOR UNKNOWN INDICATION
     Dosage: DOSE: 275 MG/M2 (BSA: 1.82 M2) WITH BI?MONTHLY FREQUENCY (2)
     Route: 065
  16. MILK THISTLE [Concomitant]
     Active Substance: DIETARY SUPPLEMENT\HERBALS\MILK THISTLE
     Indication: SUPPLEMENTATION THERAPY
     Dosage: DOSE?300 MG WITH 1.5 % OF SILYMARIN/3 X DAY, FORM?PILLS?TILL 1 DAY BEFORE THE 2ND DOSE OF CHEMO.
     Route: 065
  17. METFORMIN AND SITAGLIPTIN [Concomitant]
     Active Substance: METFORMIN\SITAGLIPTIN
     Indication: PRODUCT USED FOR UNKNOWN INDICATION
     Dosage: ()
     Route: 065

REACTIONS (6)
  - Herbal interaction [Unknown]
  - Product contamination microbial [Unknown]
  - Rash erythematous [Unknown]
  - Jaundice [Recovered/Resolved]
  - Pruritus [Unknown]
  - Hepatitis toxic [Recovered/Resolved]
